FAERS Safety Report 5788099-1 (Version None)
Quarter: 2008Q2

REPORT INFORMATION
  Report Type: 
  Country: None (occurrence: None)
  Receive Date: 20080625
  Receipt Date: 20080620
  Transmission Date: 20081010
  Serious: Yes (Hospitalization)
  Sender: FDA-Public Use
  Company Number: US-BOEHRINGER INGELHEIM GMBH, GERMANY-2008-BP-09635RO

PATIENT
  Age: 70 Year
  Sex: Male

DRUGS (12)
  1. METHOTREXATE [Suspect]
     Indication: RHEUMATOID ARTHRITIS
     Dates: end: 20040201
  2. VANCOMYCIN [Concomitant]
     Indication: STAPHYLOCOCCAL INFECTION
     Route: 042
  3. VANCOMYCIN [Concomitant]
     Indication: EVIDENCE BASED TREATMENT
     Route: 042
     Dates: start: 20040301
  4. CIPROFLOXACIN HCL [Concomitant]
     Indication: STAPHYLOCOCCAL INFECTION
     Route: 042
  5. CIPROFLOXACIN HCL [Concomitant]
     Indication: EVIDENCE BASED TREATMENT
     Route: 042
     Dates: start: 20040301
  6. ISONIAZID [Concomitant]
     Indication: TUBERCULOSIS
     Dates: start: 20040101
  7. RIFAMPICIN [Concomitant]
     Indication: TUBERCULOSIS
     Dates: start: 20040101
  8. ETHAMBUTOL HYDROCHLORIDE [Concomitant]
     Indication: TUBERCULOSIS
     Dates: start: 20040101
  9. PYRAZINAMIDE [Concomitant]
     Indication: TUBERCULOSIS
     Dates: start: 20040101
  10. PREDNISONE [Concomitant]
     Indication: RHEUMATOID ARTHRITIS
     Dates: start: 20080401
  11. CLARITHROMYCIN [Concomitant]
     Indication: MYCOBACTERIUM CHELONEI INFECTION
  12. ANTIBIOTIC THERAPY [Concomitant]
     Indication: BACTERIAL INFECTION

REACTIONS (8)
  - ARTHRALGIA [None]
  - BACTERIAL INFECTION [None]
  - HIP SWELLING [None]
  - IMPAIRED HEALING [None]
  - INCISIONAL DRAINAGE [None]
  - MYCOBACTERIUM CHELONEI INFECTION [None]
  - STAPHYLOCOCCAL INFECTION [None]
  - TUBERCULOSIS [None]
